FAERS Safety Report 24057782 (Version 1)
Quarter: 2024Q3

REPORT INFORMATION
  Report Type: Spontaneous
  Country: US (occurrence: US)
  Receive Date: 20240707
  Receipt Date: 20240707
  Transmission Date: 20241017
  Serious: Yes (Death)
  Sender: DR REDDYS
  Company Number: US-DRL-USA-LIT/USA/24/0009699

PATIENT
  Age: 45 Year
  Sex: Male

DRUGS (7)
  1. CYCLOPHOSPHAMIDE [Suspect]
     Active Substance: CYCLOPHOSPHAMIDE
     Indication: Stiff person syndrome
  2. CYCLOPHOSPHAMIDE [Suspect]
     Active Substance: CYCLOPHOSPHAMIDE
     Indication: Immunosuppressant drug therapy
  3. TECLISTAMAB [Concomitant]
     Active Substance: TECLISTAMAB
     Indication: Plasma cell myeloma
  4. RITUXIMAB [Concomitant]
     Active Substance: RITUXIMAB
     Indication: Stiff person syndrome
  5. RITUXIMAB [Concomitant]
     Active Substance: RITUXIMAB
     Indication: Immunosuppressant drug therapy
  6. METHOTREXATE [Concomitant]
     Active Substance: METHOTREXATE
     Indication: Stiff person syndrome
  7. METHOTREXATE [Concomitant]
     Active Substance: METHOTREXATE
     Indication: Immunosuppressant drug therapy

REACTIONS (1)
  - Drug ineffective for unapproved indication [Fatal]
